FAERS Safety Report 26149935 (Version 1)
Quarter: 2025Q4

REPORT INFORMATION
  Report Type: Spontaneous
  Country: US (occurrence: US)
  Receive Date: 20251212
  Receipt Date: 20251212
  Transmission Date: 20260118
  Serious: No
  Sender: BAUSCH AND LOMB
  Company Number: US-BAUSCHBL-2025BNL033412

PATIENT
  Age: 71 Year
  Sex: Female

DRUGS (1)
  1. XIIDRA [Suspect]
     Active Substance: LIFITEGRAST
     Indication: Dry eye
     Dosage: EXPIRY DATE: 30-APR-2028
     Route: 047

REACTIONS (2)
  - Vision blurred [Unknown]
  - Accidental overdose [Unknown]

NARRATIVE: CASE EVENT DATE: 20251001
